FAERS Safety Report 13431358 (Version 2)
Quarter: 2017Q2

REPORT INFORMATION
  Report Type: Other
  Country: US (occurrence: US)
  Receive Date: 20170412
  Receipt Date: 20170424
  Transmission Date: 20170830
  Serious: Yes (Hospitalization)
  Sender: FDA-Public Use
  Company Number: US-ACORDA-ACO_136121_2017

PATIENT
  Age: 64 Year
  Sex: Female

DRUGS (1)
  1. AMPYRA [Suspect]
     Active Substance: DALFAMPRIDINE
     Indication: MULTIPLE SCLEROSIS
     Dosage: 10 MG, BID (12 HOURS APART)
     Route: 048

REACTIONS (5)
  - Sepsis [Recovering/Resolving]
  - Impaired healing [Not Recovered/Not Resolved]
  - Scoliosis [Unknown]
  - Drug dose omission [Unknown]
  - Amnesia [Unknown]

NARRATIVE: CASE EVENT DATE: 201703
